FAERS Safety Report 20366312 (Version 1)
Quarter: 2022Q1

REPORT INFORMATION
  Report Type: Other
  Country: US (occurrence: US)
  Receive Date: 20220123
  Receipt Date: 20220123
  Transmission Date: 20220423
  Serious: Yes (Other)
  Sender: FDA-Public Use
  Company Number: US-ACORDA-ACO_169140_2021

PATIENT
  Age: 43 Year
  Sex: Male

DRUGS (1)
  1. AMPYRA [Suspect]
     Active Substance: DALFAMPRIDINE
     Indication: Multiple sclerosis
     Dosage: 10 MILLIGRAM, Q 12 HRS
     Route: 048
     Dates: start: 201801

REACTIONS (6)
  - Myocardial infarction [Unknown]
  - Heart rate decreased [Unknown]
  - Dehydration [Unknown]
  - Diarrhoea [Unknown]
  - Wheelchair user [Unknown]
  - Vomiting [Unknown]

NARRATIVE: CASE EVENT DATE: 20210522
